FAERS Safety Report 24123715 (Version 1)
Quarter: 2024Q3

REPORT INFORMATION
  Report Type: Spontaneous
  Country: US (occurrence: US)
  Receive Date: 20240723
  Receipt Date: 20240723
  Transmission Date: 20241017
  Serious: No
  Sender: OTSUKA
  Company Number: US-OTSUKA-2024_005864

PATIENT
  Age: 38 Year
  Sex: Female
  Weight: 111.11 kg

DRUGS (1)
  1. REXULTI [Suspect]
     Active Substance: BREXPIPRAZOLE
     Indication: Depression
     Dosage: 1.5 MG, QD (TAKES THREE 0.5MG TABLETS DAILY)
     Route: 048
     Dates: start: 202201

REACTIONS (1)
  - Product lot number issue [Unknown]

NARRATIVE: CASE EVENT DATE: 20240304
